FAERS Safety Report 7489232-6 (Version None)
Quarter: 2011Q2

REPORT INFORMATION
  Report Type: 
  Country: None (occurrence: None)
  Receive Date: 20110518
  Receipt Date: 20110509
  Transmission Date: 20111010
  Serious: Yes (Other)
  Sender: FDA-Public Use
  Company Number: US-CEPHALON-2009008800

PATIENT
  Sex: Male
  Weight: 95 kg

DRUGS (7)
  1. OXYCODONE HCL [Concomitant]
     Route: 048
  2. ACTIQ [Suspect]
     Indication: PARAPLEGIA
     Route: 002
  3. OXYCODONE HCL [Concomitant]
     Route: 048
  4. ACTIQ [Suspect]
     Indication: PAIN
     Route: 002
  5. OXYCODONE HCL [Concomitant]
     Indication: PAIN
     Route: 048
  6. ACTIQ [Suspect]
     Indication: PARALYSIS
  7. OXYCONTIN [Concomitant]
     Indication: PAIN
     Route: 048

REACTIONS (6)
  - ARTHROPATHY [None]
  - DRY MOUTH [None]
  - TOOTH LOSS [None]
  - PAIN [None]
  - DENTAL CARIES [None]
  - DRUG PRESCRIBING ERROR [None]
